FAERS Safety Report 7824698-0 (Version None)
Quarter: 2011Q4

REPORT INFORMATION
  Report Type: 
  Country: None (occurrence: None)
  Receive Date: 20111019
  Receipt Date: 20111014
  Transmission Date: 20120403
  Serious: Yes (Death)
  Sender: FDA-Public Use
  Company Number: US-AMGEN-USASP2011011871

PATIENT
  Age: 73 Year
  Sex: Male

DRUGS (1)
  1. NPLATE [Suspect]
     Indication: IDIOPATHIC THROMBOCYTOPENIC PURPURA
     Dosage: 0.4 MUG/KG, UNK
     Dates: start: 20100504, end: 20101202

REACTIONS (2)
  - RESPIRATORY FAILURE [None]
  - BRAIN NEOPLASM MALIGNANT [None]
